FAERS Safety Report 9651913 (Version 1)
Quarter: 2013Q4

REPORT INFORMATION
  Report Type: Spontaneous
  Country: US (occurrence: US)
  Receive Date: 20131029
  Receipt Date: 20131029
  Transmission Date: 20140711
  Serious: No
  Sender: FDA-Public Use
  Company Number: US-ENDO PHARMACEUTICALS INC.-LACT20120005

PATIENT
  Sex: Male

DRUGS (2)
  1. LACTULOSE ORAL SOLUTION [Suspect]
     Indication: ENCEPHALOPATHY
     Route: 048
     Dates: start: 201208, end: 201209
  2. LACTULOSE [Concomitant]
     Indication: ENCEPHALOPATHY
     Route: 048
     Dates: end: 201208

REACTIONS (1)
  - Nausea [Unknown]
